FAERS Safety Report 9417004 (Version 4)
Quarter: 2013Q3

REPORT INFORMATION
  Report Type: Spontaneous
  Country: US (occurrence: US)
  Receive Date: 20130724
  Receipt Date: 20130909
  Transmission Date: 20140515
  Serious: Yes (Hospitalization, Other)
  Sender: FDA-Public Use
  Company Number: US-PFIZER INC-2013207344

PATIENT
  Age: 74 Year
  Sex: Female

DRUGS (14)
  1. IBUPROFEN [Suspect]
     Dosage: 200MG 1-2TABLETS EVERY 4-6HOURS AS NEEDED
     Route: 048
  2. IBUPROFEN [Suspect]
     Dosage: UNK
  3. PHENAZOPYRIDINE [Suspect]
     Indication: BLADDER PAIN
     Dosage: 200 MG, 3X/DAY
     Route: 048
  4. PHENAZOPYRIDINE [Suspect]
     Indication: MICTURITION URGENCY
  5. VASERETIC [Suspect]
     Indication: PRODUCT USED FOR UNKNOWN INDICATION
     Dosage: 10/25 MG DAILY
     Route: 065
  6. ALBUTEROL SULFATE/IPRATROPIUM BROMIDE [Concomitant]
     Indication: DYSPNOEA
     Dosage: 90/18 ?G 2 INHALATIONS 4 TIMES DAILY AS NEEDED
     Route: 055
  7. FORMOTEROL [Concomitant]
     Dosage: 20?G/2ML NEBULIZED TWICE DAILY
     Route: 045
  8. BUDESONIDE [Concomitant]
     Dosage: 0.5 MG/2 ML NEBULIZED TWICE DAILY
     Route: 055
  9. FISH OIL [Concomitant]
     Dosage: 1000 MG, 2X/DAY
     Route: 065
  10. ATORVASTATIN [Concomitant]
     Dosage: 80 MG, 1X/DAY
     Route: 065
  11. ACETYLSALICYLIC ACID [Concomitant]
     Dosage: 325 MG, 1X/DAY
     Route: 065
  12. CLONAZEPAM [Concomitant]
     Dosage: 0.5 MG, 3X/DAY
     Route: 065
  13. TRAMADOL [Concomitant]
     Dosage: 50 MG, 2X/DAY
     Route: 065
  14. PROCHLORPERAZINE [Concomitant]
     Dosage: 10 MG, 1X/DAY
     Route: 065

REACTIONS (5)
  - Toxicity to various agents [Recovered/Resolved]
  - Renal failure acute [Recovered/Resolved]
  - Haemolytic anaemia [Recovered/Resolved]
  - Methaemoglobinaemia [Recovered/Resolved]
  - Skin discolouration [Recovered/Resolved]
